FAERS Safety Report 8024023-9 (Version None)
Quarter: 2011Q4

REPORT INFORMATION
  Report Type: 
  Country: None (occurrence: None)
  Receive Date: 20111230
  Receipt Date: 20111219
  Transmission Date: 20120403
  Serious: Yes (Hospitalization, Other)
  Sender: FDA-Public Use
  Company Number: 2011P1015100

PATIENT
  Age: 53 Year
  Sex: Female

DRUGS (8)
  1. VINCRISTINE [Concomitant]
  2. HYDROCORTISONE [Concomitant]
  3. DOXORUBICIN HCL [Concomitant]
  4. METHOTREXATE [Concomitant]
  5. DEXAMETHASONE [Suspect]
     Indication: ACUTE LYMPHOCYTIC LEUKAEMIA
     Dosage: 40 MG; QD
  6. IMATINIB MESYLATE [Concomitant]
  7. CYCLOPHOSPHAMIDE [Concomitant]
  8. CYTARABINE [Concomitant]

REACTIONS (10)
  - MYALGIA [None]
  - CULTURE STOOL POSITIVE [None]
  - FUSARIUM INFECTION [None]
  - FEBRILE NEUTROPENIA [None]
  - FUNGAL INFECTION [None]
  - LUNG NEOPLASM [None]
  - ESCHERICHIA TEST POSITIVE [None]
  - DIARRHOEA [None]
  - BRONCHOPULMONARY ASPERGILLOSIS [None]
  - SYSTEMIC CANDIDA [None]
